FAERS Safety Report 6331161-5 (Version None)
Quarter: 2009Q3

REPORT INFORMATION
  Report Type: 
  Country: None (occurrence: None)
  Receive Date: 20090827
  Receipt Date: 20090818
  Transmission Date: 20100115
  Serious: Yes (Death, Life-Threatening)
  Sender: FDA-Public Use
  Company Number: JP-PFIZER INC-2009253593

PATIENT
  Age: 65 Year

DRUGS (11)
  1. SILDENAFIL CITRATE [Suspect]
     Indication: PULMONARY ARTERIAL HYPERTENSION
     Dosage: 20 MG, 3X/DAY
     Route: 048
     Dates: start: 20090515, end: 20090525
  2. FLUITRAN [Concomitant]
     Dosage: UNK
     Route: 048
     Dates: end: 20090519
  3. LASIX [Concomitant]
     Dosage: UNK
     Route: 048
     Dates: end: 20090525
  4. DIGOSIN [Concomitant]
     Dosage: UNK
     Route: 048
     Dates: end: 20090525
  5. ALDACTONE [Concomitant]
     Dosage: UNK
     Dates: end: 20090525
  6. BLOPRESS [Concomitant]
     Dosage: UNK
     Route: 048
     Dates: end: 20090525
  7. ALLOPURINOL [Concomitant]
     Dosage: UNK
     Route: 048
     Dates: end: 20090519
  8. WARFARIN POTASSIUM [Concomitant]
     Dosage: UNK
     Dates: end: 20090525
  9. ZANTAC [Concomitant]
     Dosage: UNK
     Route: 048
     Dates: end: 20090525
  10. FERROUS FUMARATE [Concomitant]
     Dosage: UNK
     Route: 048
     Dates: end: 20090525
  11. BASEN [Concomitant]
     Dosage: UNK
     Route: 048
     Dates: end: 20090525

REACTIONS (2)
  - RENAL FAILURE [None]
  - SEPSIS [None]
